FAERS Safety Report 15819345 (Version 1)
Quarter: 2019Q1

REPORT INFORMATION
  Report Type: Report from Study
  Country: None (occurrence: CA)
  Receive Date: 20190114
  Receipt Date: 20190114
  Transmission Date: 20190417
  Serious: Yes (Other)
  Sender: FDA-Public Use
  Company Number: CA-ABBVIE-17K-028-1939391-00

PATIENT
  Age: 58 Year
  Sex: Female

DRUGS (1)
  1. HUMIRA [Suspect]
     Active Substance: ADALIMUMAB
     Indication: HIDRADENITIS
     Route: 058
     Dates: start: 20161210

REACTIONS (11)
  - Wound drainage [Unknown]
  - Hidradenitis [Recovering/Resolving]
  - Impaired healing [Not Recovered/Not Resolved]
  - Hidradenitis [Recovered/Resolved]
  - Fistula [Unknown]
  - Vaginal haemorrhage [Not Recovered/Not Resolved]
  - Postoperative wound complication [Not Recovered/Not Resolved]
  - Pain [Recovered/Resolved]
  - Blister [Unknown]
  - Groin abscess [Unknown]
  - Wound [Unknown]

NARRATIVE: CASE EVENT DATE: 201703
